FAERS Safety Report 25630804 (Version 3)
Quarter: 2025Q4

REPORT INFORMATION
  Report Type: Spontaneous
  Country: US (occurrence: US)
  Receive Date: 20250801
  Receipt Date: 20251001
  Transmission Date: 20260118
  Serious: No
  Sender: CIPLA
  Company Number: US-CIPLA LTD.-2025US09343

PATIENT

DRUGS (2)
  1. ALBUTEROL [Suspect]
     Active Substance: ALBUTEROL
     Indication: Nasopharyngitis
     Dosage: 4-5 PUFFS, QID (4-5 PUFFS EVERY 6 HOURS)
     Dates: start: 202507, end: 2025
  2. ALBUTEROL [Suspect]
     Active Substance: ALBUTEROL
     Dosage: 4-5 PUFFS, QID (4-5 PUFFS EVERY 6 HOURS)
     Dates: start: 2025

REACTIONS (4)
  - Drug dose omission by device [Unknown]
  - Product packaging quantity issue [Unknown]
  - Device delivery system issue [Unknown]
  - Off label use [Unknown]

NARRATIVE: CASE EVENT DATE: 20250701
